FAERS Safety Report 11234313 (Version 2)
Quarter: 2015Q3

REPORT INFORMATION
  Report Type: Report from Study
  Country: US (occurrence: US)
  Receive Date: 20150702
  Receipt Date: 20150917
  Transmission Date: 20151125
  Serious: Yes (Hospitalization)
  Sender: FDA-Public Use
  Company Number: US-BIOGENIDEC-2015BI089227

PATIENT
  Age: 60 Year
  Sex: Female

DRUGS (8)
  1. SYNTHROID [Concomitant]
     Active Substance: LEVOTHYROXINE SODIUM
  2. AMANTADINE [Concomitant]
     Active Substance: AMANTADINE
  3. AMPYRA [Concomitant]
     Active Substance: DALFAMPRIDINE
  4. TECFIDERA [Suspect]
     Active Substance: DIMETHYL FUMARATE
     Indication: MULTIPLE SCLEROSIS
     Route: 048
     Dates: start: 20131014
  5. WELLBUTRIN [Concomitant]
     Active Substance: BUPROPION HYDROCHLORIDE
  6. VITAMIN D [Concomitant]
     Active Substance: CHOLECALCIFEROL
  7. LEXAPRO [Concomitant]
     Active Substance: ESCITALOPRAM OXALATE
  8. OXYBUTYNIN [Concomitant]
     Active Substance: OXYBUTYNIN

REACTIONS (2)
  - Hemiparesis [Recovered/Resolved]
  - Seizure [Recovered/Resolved with Sequelae]

NARRATIVE: CASE EVENT DATE: 201502
